FAERS Safety Report 6431964-2 (Version None)
Quarter: 2009Q4

REPORT INFORMATION
  Report Type: 
  Country: None (occurrence: None)
  Receive Date: 20091109
  Receipt Date: 20091026
  Transmission Date: 20100525
  Serious: No
  Sender: FDA-Public Use
  Company Number: US-JNJFOC-20091008710

PATIENT
  Sex: Male
  Weight: 47.63 kg

DRUGS (2)
  1. DURAGESIC-100 [Suspect]
     Indication: ARTHRITIS
     Dosage: NDC#: 50458-093-05
     Route: 062
     Dates: start: 20091001
  2. UNKNOWN MEDICATION [Concomitant]
     Indication: CROHN'S DISEASE
     Dates: start: 20090901

REACTIONS (4)
  - INADEQUATE ANALGESIA [None]
  - INAPPROPRIATE SCHEDULE OF DRUG ADMINISTRATION [None]
  - OVERDOSE [None]
  - WITHDRAWAL SYNDROME [None]
